FAERS Safety Report 17442095 (Version 1)
Quarter: 2020Q1

REPORT INFORMATION
  Report Type: Spontaneous
  Country: CN (occurrence: CN)
  Receive Date: 20200220
  Receipt Date: 20200220
  Transmission Date: 20200409
  Serious: No
  Sender: FDA-Public Use
  Company Number: CN-B.BRAUN MEDICAL INC.-2080729

PATIENT
  Age: 72 Year
  Sex: Female
  Weight: 61 kg

DRUGS (3)
  1. COMPOUND POTASSIUM HYDROGEN PHOSPHATE INJECTION [Concomitant]
     Route: 041
     Dates: start: 20200106, end: 20200106
  2. NUTRILIPID I.V. FAT EMULSION [Suspect]
     Active Substance: SOYBEAN OIL
     Indication: ILL-DEFINED DISORDER
     Route: 041
     Dates: start: 20200106, end: 20200106
  3. COMPOUND AMINO ACID INJECTION (20AA) [Concomitant]
     Route: 041
     Dates: start: 20200106, end: 20200106

REACTIONS (3)
  - Pyrexia [Recovered/Resolved]
  - Anaphylactic reaction [Recovered/Resolved]
  - Chills [Recovered/Resolved]

NARRATIVE: CASE EVENT DATE: 20200106
